FAERS Safety Report 7902739-X (Version None)
Quarter: 2011Q4

REPORT INFORMATION
  Report Type: 
  Country: None (occurrence: None)
  Receive Date: 20111109
  Receipt Date: 20111102
  Transmission Date: 20120403
  Serious: Yes (Other)
  Sender: FDA-Public Use
  Company Number: US-BIOGENIDEC-2011BI020606

PATIENT
  Age: 67 Year
  Sex: Male

DRUGS (7)
  1. CIALIS [Concomitant]
     Indication: ERECTILE DYSFUNCTION
  2. BACLOFEN [Concomitant]
  3. AVONEX [Concomitant]
     Indication: MULTIPLE SCLEROSIS
     Route: 030
     Dates: start: 20000629
  4. MELOXICAM [Concomitant]
  5. DILANTIN [Concomitant]
  6. TYSABRI [Suspect]
     Indication: MULTIPLE SCLEROSIS
     Route: 042
     Dates: start: 20110211
  7. PROVIGIL [Concomitant]

REACTIONS (1)
  - PROSTATE CANCER STAGE II [None]
